FAERS Safety Report 9356375 (Version 1)
Quarter: 2013Q2

REPORT INFORMATION
  Report Type: Spontaneous
  Country: US (occurrence: US)
  Receive Date: 20130619
  Receipt Date: 20130619
  Transmission Date: 20140414
  Serious: Yes (Other)
  Sender: FDA-Public Use
  Company Number: US-BAYER-2013-075307

PATIENT
  Sex: 0

DRUGS (1)
  1. ALKA-SELTZER ORIGINAL [Suspect]
     Dosage: UNK

REACTIONS (2)
  - Somnolence [None]
  - Hallucination [None]
